FAERS Safety Report 19573206 (Version 1)
Quarter: 2021Q3

REPORT INFORMATION
  Report Type: Other
  Country: IT (occurrence: IT)
  Receive Date: 20210716
  Receipt Date: 20210716
  Transmission Date: 20211014
  Serious: Yes (Death, Hospitalization)
  Sender: FDA-Public Use
  Company Number: IT-ROCHE-2872166

PATIENT

DRUGS (3)
  1. RITUXIMAB. [Suspect]
     Active Substance: RITUXIMAB
     Indication: LYMPHOPROLIFERATIVE DISORDER
     Route: 041
  2. RITUXIMAB. [Suspect]
     Active Substance: RITUXIMAB
     Indication: LYMPHOMA
     Route: 041
  3. RITUXIMAB. [Suspect]
     Active Substance: RITUXIMAB
     Indication: FACTOR II INHIBITION

REACTIONS (6)
  - Off label use [Unknown]
  - Pulmonary embolism [Unknown]
  - Cytomegalovirus infection [Fatal]
  - Infection [Fatal]
  - Cytomegalovirus test [Unknown]
  - Multiple organ dysfunction syndrome [Fatal]
